FAERS Safety Report 8814426 (Version 1)
Quarter: 2012Q4

REPORT INFORMATION
  Report Type: Spontaneous
  Country: US (occurrence: None)
  Receive Date: 20120925
  Receipt Date: 20120925
  Transmission Date: 20130627
  Serious: Yes (Hospitalization)
  Sender: FDA-Public Use
  Company Number: JPI-P-024862

PATIENT
  Age: 93 Year
  Sex: Female

DRUGS (2)
  1. XYREM [Suspect]
     Indication: CATAPLEXY
     Dates: start: 20021025
  2. XYREM [Suspect]
     Indication: CATAPLEXY
     Route: 048

REACTIONS (3)
  - Road traffic accident [None]
  - Rib fracture [None]
  - Pain [None]
